FAERS Safety Report 6835373-3 (Version None)
Quarter: 2010Q3

REPORT INFORMATION
  Report Type: 
  Country: None (occurrence: None)
  Receive Date: 20100708
  Receipt Date: 20100602
  Transmission Date: 20110219
  Serious: Yes (Death, Other)
  Sender: FDA-Public Use
  Company Number: 2010US002624

PATIENT
  Age: 34 Year
  Sex: Male

DRUGS (1)
  1. PROGRAF [Suspect]
     Indication: LIVER TRANSPLANT
     Dosage: 1 MG, UID/QD, ORAL
     Route: 048
     Dates: start: 20020203, end: 20020203

REACTIONS (2)
  - HEPATIC FAILURE [None]
  - TREATMENT NONCOMPLIANCE [None]
